FAERS Safety Report 22154231 (Version 1)
Quarter: 2023Q1

REPORT INFORMATION
  Report Type: Other
  Country: US (occurrence: US)
  Receive Date: 20230330
  Receipt Date: 20230330
  Transmission Date: 20230418
  Serious: No
  Sender: FDA-Public Use
  Company Number: US-GBT-021156

PATIENT
  Sex: Male

DRUGS (1)
  1. OXBRYTA [Suspect]
     Active Substance: VOXELOTOR
     Indication: Sickle cell disease
     Dosage: 500 MG TABLETS - UNKNOWN FREQUENCY

REACTIONS (6)
  - Hypertension [Unknown]
  - Overweight [Unknown]
  - Haemoglobin abnormal [Unknown]
  - Therapy interrupted [Unknown]
  - Abdominal pain upper [Unknown]
  - Diarrhoea [Unknown]
